FAERS Safety Report 19961832 (Version 2)
Quarter: 2021Q4

REPORT INFORMATION
  Report Type: Report from Study
  Country: BR (occurrence: BR)
  Receive Date: 20211018
  Receipt Date: 20211215
  Transmission Date: 20220303
  Serious: Yes (Hospitalization)
  Sender: FDA-Public Use
  Company Number: BR-BIOGEN-2021BI01057067

PATIENT
  Age: 31 Year
  Sex: Female

DRUGS (3)
  1. TYSABRI [Suspect]
     Active Substance: NATALIZUMAB
     Indication: Multiple sclerosis
     Route: 042
     Dates: start: 20210701
  2. FLUOXETINE [Concomitant]
     Active Substance: FLUOXETINE HYDROCHLORIDE
     Indication: Anxiety
     Route: 048
     Dates: start: 2020
  3. BACLOFEN [Concomitant]
     Active Substance: BACLOFEN
     Indication: Muscle rigidity
     Route: 048
     Dates: start: 202106

REACTIONS (1)
  - Multiple sclerosis relapse [Not Recovered/Not Resolved]

NARRATIVE: CASE EVENT DATE: 20211001
